FAERS Safety Report 6157509-2 (Version None)
Quarter: 2009Q2

REPORT INFORMATION
  Report Type: 
  Country: None (occurrence: None)
  Receive Date: 20090416
  Receipt Date: 20090406
  Transmission Date: 20091009
  Serious: Yes (Hospitalization, Other)
  Sender: FDA-Public Use
  Company Number: BR-PFIZER INC-2009194715

PATIENT

DRUGS (1)
  1. CELEBRA [Suspect]
     Indication: INFLAMMATION
     Dosage: UNK
     Dates: end: 20090101

REACTIONS (7)
  - ARRHYTHMIA [None]
  - BLINDNESS [None]
  - BLINDNESS TRANSIENT [None]
  - BLINDNESS UNILATERAL [None]
  - CEREBROVASCULAR ACCIDENT [None]
  - COAGULOPATHY [None]
  - VISUAL FIELD DEFECT [None]
